FAERS Safety Report 5360515-9 (Version None)
Quarter: 2007Q2

REPORT INFORMATION
  Report Type: 
  Country: None (occurrence: None)
  Receive Date: 20070618
  Receipt Date: 20070607
  Transmission Date: 20071010
  Serious: Yes (Hospitalization, Disabling, Other)
  Sender: FDA-Public Use
  Company Number: B0475340A

PATIENT
  Age: 55 Year
  Sex: Female
  Weight: 82 kg

DRUGS (3)
  1. COMBIVIR [Suspect]
     Indication: PROPHYLAXIS
     Route: 048
     Dates: start: 20070509, end: 20070511
  2. NELFINAVIR [Suspect]
     Indication: PROPHYLAXIS
     Route: 048
     Dates: start: 20070509, end: 20070511
  3. COZAAR [Concomitant]
     Route: 048
     Dates: start: 20060101

REACTIONS (3)
  - FASCIITIS [None]
  - NEUROPATHY PERIPHERAL [None]
  - PARAESTHESIA [None]
